FAERS Safety Report 5474253-5 (Version None)
Quarter: 2007Q4

REPORT INFORMATION
  Report Type: 
  Country: None (occurrence: None)
  Receive Date: 20071002
  Receipt Date: 20070613
  Transmission Date: 20080405
  Serious: No
  Sender: FDA-Public Use
  Company Number: US-ASTRAZENECA-2007UW14217

PATIENT
  Sex: Female

DRUGS (1)
  1. ARIMIDEX [Suspect]

REACTIONS (1)
  - DENTAL CARIES [None]
